FAERS Safety Report 4698879-1 (Version None)
Quarter: 2005Q2

REPORT INFORMATION
  Report Type: 
  Country: None (occurrence: None)
  Receive Date: 20050624
  Receipt Date: 20050613
  Transmission Date: 20051028
  Serious: Yes (Hospitalization)
  Sender: FDA-Public Use
  Company Number: US-JNJFOC-20050401115

PATIENT
  Age: 84 Year
  Sex: Female

DRUGS (3)
  1. RISPERDAL [Suspect]
     Route: 065
  2. RISPERDAL [Suspect]
     Route: 065
  3. TIAPRIDE HYDROCHLORIDE [Concomitant]

REACTIONS (2)
  - HICCUPS [None]
  - TARDIVE DYSKINESIA [None]
